FAERS Safety Report 15578601 (Version 2)
Quarter: 2018Q4

REPORT INFORMATION
  Report Type: Report from Study
  Country: GB (occurrence: GB)
  Receive Date: 20181102
  Receipt Date: 20181121
  Transmission Date: 20190205
  Serious: Yes (Other)
  Sender: FDA-Public Use
  Company Number: PHHY2018GB141684

PATIENT
  Age: 55 Year
  Sex: Female

DRUGS (4)
  1. DABRAFENIB [Suspect]
     Active Substance: DABRAFENIB
     Dosage: 150 MG, BID
     Route: 048
     Dates: start: 201703, end: 201801
  2. DABRAFENIB [Suspect]
     Active Substance: DABRAFENIB
     Indication: MALIGNANT MELANOMA
     Dosage: 150 MG, BID
     Route: 065
     Dates: start: 201502
  3. TRAMETINIB [Suspect]
     Active Substance: TRAMETINIB
     Indication: MALIGNANT MELANOMA
     Dosage: 2 MG, QD
     Route: 048
     Dates: start: 201502
  4. TRAMETINIB [Suspect]
     Active Substance: TRAMETINIB
     Dosage: 2 MG, QD
     Route: 048
     Dates: start: 201703, end: 201801

REACTIONS (8)
  - Malignant neoplasm progression [Unknown]
  - Ocular hyperaemia [Unknown]
  - Metastases to central nervous system [Unknown]
  - Sarcoidosis [Unknown]
  - Vision blurred [Unknown]
  - Retinal detachment [Recovering/Resolving]
  - Uveitis [Unknown]
  - Mediastinal mass [Unknown]

NARRATIVE: CASE EVENT DATE: 201712
